FAERS Safety Report 24743463 (Version 1)
Quarter: 2024Q4

REPORT INFORMATION
  Report Type: Spontaneous
  Country: FI (occurrence: FI)
  Receive Date: 20241217
  Receipt Date: 20241217
  Transmission Date: 20250115
  Serious: Yes (Hospitalization, Other)
  Sender: GLAXOSMITHKLINE
  Company Number: FI-GSK-FI2024155917

PATIENT

DRUGS (1)
  1. JEMPERLI [Suspect]
     Active Substance: DOSTARLIMAB\DOSTARLIMAB-GXLY
     Indication: Endometrial adenocarcinoma
     Dosage: UNK
     Dates: start: 202405, end: 202408

REACTIONS (9)
  - Glucocorticoid deficiency [Recovering/Resolving]
  - Hyponatraemia [Unknown]
  - Colitis [Recovering/Resolving]
  - Crohn^s disease [Unknown]
  - Rash [Recovering/Resolving]
  - Hypophysitis [Unknown]
  - Pyrexia [Unknown]
  - COVID-19 [Unknown]
  - Fractured sacrum [Unknown]

NARRATIVE: CASE EVENT DATE: 20240901
